FAERS Safety Report 8350003-X (Version None)
Quarter: 2012Q2

REPORT INFORMATION
  Report Type: 
  Country: None (occurrence: None)
  Receive Date: 20120510
  Receipt Date: 20120508
  Transmission Date: 20120825
  Serious: Yes (Disabling, Other)
  Sender: FDA-Public Use
  Company Number: DE-ROCHE-1046719

PATIENT
  Sex: Male
  Weight: 50 kg

DRUGS (10)
  1. ROFERON-A [Suspect]
     Route: 058
     Dates: start: 20120227, end: 20120305
  2. ERGOCALCIFEROL [Concomitant]
     Route: 065
  3. XUSAL [Concomitant]
     Indication: PRURITUS
     Route: 048
  4. PANTOPRAZOLE [Concomitant]
     Indication: PROPHYLAXIS AGAINST GASTROINTESTINAL ULCER
     Route: 048
  5. LYRICA [Concomitant]
     Route: 048
  6. ROFERON-A [Suspect]
     Indication: MYCOSIS FUNGOIDES
     Route: 058
     Dates: start: 20120220, end: 20120224
  7. AMITRIPTYLINE HCL [Concomitant]
     Route: 048
  8. LEVOTHYROXINE SODIUM [Concomitant]
     Indication: HYPOTHYROIDISM
     Route: 048
  9. ATARAX [Concomitant]
     Indication: PRURITUS
     Route: 048
  10. ARCOXIA [Concomitant]
     Route: 048

REACTIONS (3)
  - VITAMIN B12 DEFICIENCY [None]
  - DEMYELINATING POLYNEUROPATHY [None]
  - PARAESTHESIA [None]
